FAERS Safety Report 20096394 (Version 1)
Quarter: 2021Q4

REPORT INFORMATION
  Report Type: Report from Study
  Country: JP (occurrence: JP)
  Receive Date: 20211122
  Receipt Date: 20211122
  Transmission Date: 20220303
  Serious: Yes (Other)
  Sender: FDA-Public Use
  Company Number: JP-RECORDATI RARE DISEASE INC.-2021004772

PATIENT
  Age: 5 Day
  Sex: Female
  Weight: .558 kg

DRUGS (46)
  1. NEOPROFEN [Suspect]
     Active Substance: IBUPROFEN LYSINE
     Indication: Patent ductus arteriosus
     Dosage: 5.6 MILLIGRAM
     Route: 042
     Dates: start: 20191128, end: 20191128
  2. NEOPROFEN [Suspect]
     Active Substance: IBUPROFEN LYSINE
     Dosage: 2.8 MILLIGRAM
     Route: 042
     Dates: start: 20191129, end: 20191129
  3. NEOPROFEN [Suspect]
     Active Substance: IBUPROFEN LYSINE
     Dosage: 2.8 MILLIGRAM
     Route: 042
     Dates: start: 20191130, end: 20191130
  4. NEOPROFEN [Suspect]
     Active Substance: IBUPROFEN LYSINE
     Dosage: 5.6 MILLIGRAM
     Route: 042
     Dates: start: 20191202, end: 20191202
  5. NEOPROFEN [Suspect]
     Active Substance: IBUPROFEN LYSINE
     Dosage: 2.8 MILLIGRAM
     Route: 042
     Dates: start: 20191203, end: 20191203
  6. NEOPROFEN [Suspect]
     Active Substance: IBUPROFEN LYSINE
     Dosage: 2.8 MILLIGRAM
     Route: 042
     Dates: start: 20191204, end: 20191204
  7. NEOPROFEN [Suspect]
     Active Substance: IBUPROFEN LYSINE
     Dosage: 7 MILLIGRAM
     Route: 042
     Dates: start: 20191231, end: 20191231
  8. NEOPROFEN [Suspect]
     Active Substance: IBUPROFEN LYSINE
     Dosage: 3.5 MILLIGRAM
     Route: 042
     Dates: start: 20200101, end: 20200101
  9. NEOPROFEN [Suspect]
     Active Substance: IBUPROFEN LYSINE
     Dosage: 3.5 MILLIGRAM
     Route: 042
     Dates: start: 20200102, end: 20200102
  10. NEOPROFEN [Suspect]
     Active Substance: IBUPROFEN LYSINE
     Dosage: UNK
  11. DOBUTREX [Concomitant]
     Active Substance: DOBUTAMINE HYDROCHLORIDE
     Indication: Positive cardiac inotropic effect
     Dosage: UNK
     Route: 065
     Dates: start: 20191127, end: 20191128
  12. AMIKACIN SULFATE [Concomitant]
     Active Substance: AMIKACIN SULFATE
     Indication: Sepsis neonatal
     Dosage: UNK
     Route: 042
     Dates: start: 20191127, end: 20191129
  13. ACOALAN [Concomitant]
     Indication: Coagulation factor decreased
     Dosage: UNK
     Route: 042
     Dates: start: 20191127, end: 20191130
  14. ACOALAN [Concomitant]
     Indication: Prophylaxis
  15. FACTOR XIII CONCENTRATE (HUMAN) [Concomitant]
     Active Substance: FACTOR XIII CONCENTRATE (HUMAN)
     Indication: Coagulation factor decreased
     Dosage: UNK
     Route: 042
     Dates: start: 20191127, end: 20191130
  16. FACTOR XIII CONCENTRATE (HUMAN) [Concomitant]
     Active Substance: FACTOR XIII CONCENTRATE (HUMAN)
     Indication: Prophylaxis
  17. VENOGLOBULIN IH [Concomitant]
     Active Substance: HUMAN IMMUNOGLOBULIN G
     Indication: Coagulation factor decreased
     Dosage: UNK
     Route: 042
     Dates: start: 20191127, end: 20191201
  18. VENOGLOBULIN IH [Concomitant]
     Active Substance: HUMAN IMMUNOGLOBULIN G
     Indication: Prophylaxis
  19. THROMBOMODULIN ALFA [Concomitant]
     Active Substance: THROMBOMODULIN ALFA
     Indication: Sepsis neonatal
     Dosage: UNK
     Route: 042
     Dates: start: 20191128, end: 20191202
  20. VICCILLIN [AMPICILLIN SODIUM] [Concomitant]
     Indication: Sepsis neonatal
     Dosage: UNK
     Route: 042
     Dates: start: 20191127, end: 20191205
  21. CLAFORAN [Concomitant]
     Active Substance: CEFOTAXIME SODIUM
     Indication: Sepsis neonatal
     Dosage: UNK
     Route: 042
     Dates: start: 20191127, end: 20191205
  22. CALCIUM GLUCONATE [Concomitant]
     Active Substance: CALCIUM GLUCONATE
     Indication: Hypocalcaemia
     Dosage: UNK
     Route: 065
     Dates: start: 20191127, end: 20191213
  23. MICAFUNGIN SODIUM [Concomitant]
     Active Substance: MICAFUNGIN SODIUM
     Indication: Infection prophylaxis
     Dosage: UNK
     Route: 042
     Dates: start: 20191127, end: 20191214
  24. MICONAZOLE [Concomitant]
     Active Substance: MICONAZOLE
     Indication: Infection prophylaxis
     Dosage: UNK
     Route: 048
     Dates: start: 20191127, end: 20191217
  25. MENATETRENONE [Concomitant]
     Active Substance: MENATETRENONE
     Indication: Vitamin K deficiency
     Dosage: UNK
     Route: 042
     Dates: start: 20191127, end: 20200106
  26. MENATETRENONE [Concomitant]
     Active Substance: MENATETRENONE
     Indication: Prophylaxis
  27. SOYBEAN OIL [Concomitant]
     Active Substance: SOYBEAN OIL
     Indication: Parenteral nutrition
     Dosage: UNK
     Route: 065
     Dates: start: 20191129, end: 20200130
  28. FLUTICASONE PROPIONATE [Concomitant]
     Active Substance: FLUTICASONE PROPIONATE
     Indication: Chronic respiratory disease
     Dosage: UNK
     Dates: start: 20191203, end: 20200114
  29. FLUTICASONE PROPIONATE [Concomitant]
     Active Substance: FLUTICASONE PROPIONATE
     Indication: Prophylaxis
  30. SOLU-CORTEF [Concomitant]
     Active Substance: HYDROCORTISONE SODIUM SUCCINATE
     Indication: Chronic respiratory disease
     Dosage: UNK
     Route: 042
     Dates: start: 20191207, end: 20200216
  31. ESPO [EPOETIN ALFA] [Concomitant]
     Indication: Anaemia neonatal
     Dosage: UNK
     Route: 042
     Dates: start: 20191213, end: 20200306
  32. ESPO [EPOETIN ALFA] [Concomitant]
     Indication: Prophylaxis
  33. SODIUM CHLORIDE [Concomitant]
     Active Substance: SODIUM CHLORIDE
     Indication: Hyponatraemia
     Dosage: UNK
     Route: 048
     Dates: start: 20191216, end: 20200305
  34. SODIUM CHLORIDE [Concomitant]
     Active Substance: SODIUM CHLORIDE
     Indication: Prophylaxis
  35. HERBAL NOS [Concomitant]
     Active Substance: HERBALS
     Indication: Peristalsis visible
     Dosage: UNK
     Route: 048
     Dates: start: 20191214, end: 20191226
  36. MOSAPRIDE CITRATE [Concomitant]
     Active Substance: MOSAPRIDE CITRATE
     Indication: Peristalsis visible
     Dosage: UNK
     Route: 048
     Dates: start: 20191214, end: 20191226
  37. CAFFEINE [Concomitant]
     Active Substance: CAFFEINE
     Indication: Chronic respiratory disease
     Dosage: UNK
     Route: 042
     Dates: start: 20191227, end: 20200115
  38. CAFFEINE [Concomitant]
     Active Substance: CAFFEINE
     Indication: Prophylaxis
  39. LEVOTHYROXINE SODIUM [Concomitant]
     Active Substance: LEVOTHYROXINE SODIUM
     Indication: Hypothyroidism
     Dosage: UNK
     Route: 048
     Dates: start: 20191219, end: 20200114
  40. FERRIC PYROPHOSPHATE [Concomitant]
     Active Substance: FERRIC PYROPHOSPHATE
     Indication: Anaemia neonatal
     Dosage: UNK
     Route: 048
     Dates: start: 20191220, end: 20191226
  41. FERRIC PYROPHOSPHATE [Concomitant]
     Active Substance: FERRIC PYROPHOSPHATE
     Indication: Prophylaxis
  42. FUROSEMIDE [Concomitant]
     Active Substance: FUROSEMIDE
     Indication: Urine output decreased
     Dosage: UNK
     Route: 042
     Dates: start: 20200102, end: 20200102
  43. DIBASIC CALCIUM PHOSPHATE [Concomitant]
     Indication: Rickets
     Dosage: UNK
     Route: 048
     Dates: start: 20191220, end: 20191226
  44. DIBASIC CALCIUM PHOSPHATE [Concomitant]
     Indication: Prophylaxis
  45. ALFAROL [Concomitant]
     Active Substance: ALFACALCIDOL
     Indication: Rickets
     Route: 048
  46. ALFAROL [Concomitant]
     Active Substance: ALFACALCIDOL
     Indication: Prophylaxis

REACTIONS (5)
  - Coagulation factor decreased [Recovering/Resolving]
  - Hyperglycaemia [Recovering/Resolving]
  - Hypothyroidism [Recovering/Resolving]
  - Urine output decreased [Recovering/Resolving]
  - Chronic respiratory disease [Recovering/Resolving]

NARRATIVE: CASE EVENT DATE: 20191202
